FAERS Safety Report 4333071-1 (Version None)
Quarter: 2004Q1

REPORT INFORMATION
  Report Type: 
  Country: None (occurrence: None)
  Receive Date: 20040330
  Receipt Date: 20040318
  Transmission Date: 20041129
  Serious: No
  Sender: FDA-Public Use
  Company Number: 04P-163-0254164-00

PATIENT
  Age: 20 Year
  Sex: Female
  Weight: 39.1 kg

DRUGS (2)
  1. DEPAKENE [Suspect]
     Indication: CONVULSION
     Dosage: 1875 MG,
  2. CLONAZEPINE (BARBEXACLONE) (BARBEXACLONE) [Concomitant]

REACTIONS (1)
  - HYPOALBUMINAEMIA [None]
